FAERS Safety Report 6841686-1 (Version None)
Quarter: 2010Q3

REPORT INFORMATION
  Report Type: 
  Country: None (occurrence: None)
  Receive Date: 20100709
  Receipt Date: 20100628
  Transmission Date: 20110219
  Serious: Yes (Hospitalization)
  Sender: FDA-Public Use
  Company Number: TCI2010A02162

PATIENT
  Age: 70 Year
  Sex: Female

DRUGS (6)
  1. ACTOS [Suspect]
     Indication: TYPE 2 DIABETES MELLITUS
     Dosage: 15 MG 915 MG, 1 IN 1 D) PER ORAL
     Route: 048
     Dates: start: 20090402, end: 20090703
  2. DIOVAN [Concomitant]
  3. CALBLOCK (AZELNIDIPINE) [Concomitant]
  4. AMARYL [Concomitant]
  5. METFORMIN HYDROCHLORIDE [Concomitant]
  6. SEIZULE (MIGLITOL) [Concomitant]

REACTIONS (2)
  - INTERSTITIAL LUNG DISEASE [None]
  - PNEUMONIA [None]
